FAERS Safety Report 25301365 (Version 1)
Quarter: 2025Q2

REPORT INFORMATION
  Report Type: Spontaneous
  Country: US (occurrence: US)
  Receive Date: 20250512
  Receipt Date: 20250512
  Transmission Date: 20250716
  Serious: No
  Sender: MYLAN
  Company Number: US-MYLANLABS-2025M1037790

PATIENT
  Age: 71 Year
  Sex: Female

DRUGS (1)
  1. PROCTOFOAM HC [Suspect]
     Active Substance: HYDROCORTISONE ACETATE\PRAMOXINE HYDROCHLORIDE
     Indication: Haemorrhoids
     Dosage: 1 PERCENT, BID (TWO TIMES A DAY)
     Dates: start: 20250429

REACTIONS (3)
  - Off label use [Unknown]
  - Device delivery system issue [Unknown]
  - Device leakage [Unknown]

NARRATIVE: CASE EVENT DATE: 20250429
